FAERS Safety Report 6750193-6 (Version None)
Quarter: 2010Q2

REPORT INFORMATION
  Report Type: 
  Country: None (occurrence: None)
  Receive Date: 20100601
  Receipt Date: 20100520
  Transmission Date: 20101027
  Serious: Yes (Death, Life-Threatening, Hospitalization)
  Sender: FDA-Public Use
  Company Number: JP-PFIZER INC-2010027122

PATIENT
  Age: 72 Year
  Sex: Male

DRUGS (16)
  1. SUNITINIB MALATE [Suspect]
     Indication: RENAL CELL CARCINOMA
     Dosage: UNK
     Route: 048
     Dates: start: 20100101
  2. FLIVAS [Concomitant]
     Route: 048
     Dates: start: 20091006
  3. MICARDIS [Concomitant]
     Route: 048
     Dates: start: 20091006
  4. AMLODIPINE [Concomitant]
     Route: 048
     Dates: start: 20091006
  5. TAKEPRON [Concomitant]
     Route: 048
     Dates: start: 20091006
  6. CRESTOR [Concomitant]
     Route: 048
     Dates: start: 20091006
  7. VOLTAREN [Concomitant]
     Route: 048
     Dates: start: 20091224
  8. POLYCARBOPHIL CALCIUM [Concomitant]
     Route: 048
     Dates: start: 20091006
  9. THYRADIN S [Concomitant]
     Route: 048
     Dates: start: 20091006
  10. LASIX [Concomitant]
     Route: 048
     Dates: start: 20091006
  11. AUGMENTIN '125' [Concomitant]
     Route: 048
     Dates: start: 20091124
  12. CIBENZOLINE SUCCINATE [Concomitant]
     Route: 048
     Dates: start: 20091124
  13. ASPARA K [Concomitant]
     Route: 048
     Dates: start: 20091125
  14. RHYTHMY [Concomitant]
     Route: 048
     Dates: start: 20091127
  15. LOXONIN [Concomitant]
     Route: 048
     Dates: start: 20091129
  16. PURSENNID [Concomitant]
     Route: 048
     Dates: start: 20091202

REACTIONS (5)
  - DIARRHOEA [None]
  - INTESTINAL OBSTRUCTION [None]
  - MELAENA [None]
  - PNEUMONIA [None]
  - PNEUMOTHORAX [None]
